FAERS Safety Report 21203076 (Version 1)
Quarter: 2022Q3

REPORT INFORMATION
  Report Type: Spontaneous
  Country: US (occurrence: US)
  Receive Date: 20220811
  Receipt Date: 20220811
  Transmission Date: 20221026
  Serious: No
  Sender: FDA-Public Use
  Company Number: US-OTSUKA-2022_028144

PATIENT
  Age: 67 Year
  Sex: Female
  Weight: 52.16 kg

DRUGS (2)
  1. REXULTI [Suspect]
     Active Substance: BREXPIPRAZOLE
     Indication: Major depression
     Dosage: 1 MG, QD
     Route: 065
     Dates: start: 2021, end: 20220517
  2. PRISTIQ EXTENDED-RELEASE [Suspect]
     Active Substance: DESVENLAFAXINE SUCCINATE
     Indication: Major depression
     Dosage: 100 MG
     Route: 065

REACTIONS (3)
  - Joint stiffness [Not Recovered/Not Resolved]
  - Musculoskeletal stiffness [Not Recovered/Not Resolved]
  - Pain [Unknown]

NARRATIVE: CASE EVENT DATE: 20220201
